FAERS Safety Report 16898631 (Version 2)
Quarter: 2019Q4

REPORT INFORMATION
  Report Type: Spontaneous
  Country: US (occurrence: US)
  Receive Date: 20191009
  Receipt Date: 20191022
  Transmission Date: 20200122
  Serious: Yes (Other)
  Sender: FDA-Public Use
  Company Number: US-AKORN PHARMACEUTICALS-2019AKN02104

PATIENT
  Age: 16 Year
  Sex: Male
  Weight: 77.5 kg

DRUGS (14)
  1. AUVI-Q AUTO INJECTOR [Concomitant]
  2. ZYRTEC [Concomitant]
     Active Substance: CETIRIZINE HYDROCHLORIDE
     Dosage: 10 MG, 1X/DAY
  3. MELATONIN [Concomitant]
     Active Substance: MELATONIN
     Dosage: 4 MG, 1X/DAY AT BEDTIME
  4. METHYLPHENIDATE. [Concomitant]
     Active Substance: METHYLPHENIDATE
     Dosage: 36 MG, 1X/DAY
  5. OXCARBAZEPINE. [Concomitant]
     Active Substance: OXCARBAZEPINE
     Dosage: 150 MG, 1X/DAY
  6. PATANASE [Concomitant]
     Active Substance: OLOPATADINE HYDROCHLORIDE
     Dosage: UNK, 2X/DAY
  7. SINGULAIR [Concomitant]
     Active Substance: MONTELUKAST SODIUM
     Dosage: 10 MG, 1X/DAY
  8. MYORISAN [Suspect]
     Active Substance: ISOTRETINOIN
     Indication: ACNE
     Dosage: 30 MG, 1X/DAY
     Route: 048
     Dates: start: 20190903, end: 20190917
  9. CLONIDINE. [Concomitant]
     Active Substance: CLONIDINE
     Dosage: 0.3 MG, 1X/DAY
  10. RHINOCORT ALLERGY [Concomitant]
     Active Substance: BUDESONIDE
  11. TRIPLEPTAL [Concomitant]
     Dosage: 300 MG, 2X/DAY
  12. GRASTEK [Concomitant]
     Active Substance: PHLEUM PRATENSE POLLEN
     Dosage: 2800 BIOEQUIVALENT ALLERGY UNITS (BAU), 1X/DAY
     Route: 060
  13. TRIAMCINOLONE 0.1% OINTMENT [Concomitant]
     Dosage: UNK, 2X/DAY
  14. VENTOLIN [Concomitant]
     Active Substance: ALBUTEROL SULFATE
     Dosage: UNK, AS NEEDED

REACTIONS (3)
  - Off label use [Recovered/Resolved]
  - Anger [Recovered/Resolved]
  - Hallucination, auditory [Recovered/Resolved]

NARRATIVE: CASE EVENT DATE: 201909
